FAERS Safety Report 5896760-3 (Version None)
Quarter: 2008Q3

REPORT INFORMATION
  Report Type: 
  Country: None (occurrence: None)
  Receive Date: 20080924
  Receipt Date: 20071106
  Transmission Date: 20090109
  Serious: Yes (Other)
  Sender: FDA-Public Use
  Company Number: US-ASTRAZENECA-2007UW23780

PATIENT
  Age: 50 Year
  Sex: Female

DRUGS (5)
  1. SEROQUEL [Suspect]
     Route: 048
  2. SEROQUEL [Suspect]
     Route: 048
  3. ATIVAN [Concomitant]
  4. BENADRYL [Concomitant]
  5. NEURONTIN [Concomitant]

REACTIONS (1)
  - RHABDOMYOLYSIS [None]
